FAERS Safety Report 8985074 (Version 1)
Quarter: 2012Q4

REPORT INFORMATION
  Report Type: 
  Country: IN (occurrence: IN)
  Receive Date: 20121226
  Receipt Date: 20121226
  Transmission Date: 20130627
  Serious: Yes (Hospitalization)
  Sender: FDA-Public Use
  Company Number: PHHY2012IN118553

PATIENT
  Age: 70 Year
  Sex: Female

DRUGS (22)
  1. ACLASTA [Suspect]
     Indication: OSTEOPOROSIS
     Dosage: UNK UKN, UNK
     Route: 042
     Dates: start: 20111010
  2. FELDEX [Concomitant]
     Dosage: 1 DF, UNK
  3. NALBUPHINE HYDROCHLORIDE [Concomitant]
     Dosage: 10 mg, UNK
  4. OSTEOFIT XT [Concomitant]
     Dosage: UNK UKN, UNK
  5. TRYPSIN [Concomitant]
     Dosage: 48 mg, UNK
  6. BROMELAIN [Concomitant]
     Dosage: 90 mg, UNK
  7. RUTOSIDE [Concomitant]
     Dosage: 100 mg, UNK
  8. INSULET [Concomitant]
     Dosage: UNK UKN, UNK
  9. VIOLET [Concomitant]
     Dosage: UNK UKN, UNK
  10. CLAVULANIC ACID [Concomitant]
     Dosage: UNK UKN, UNK
  11. AMOXYCILLIN [Concomitant]
     Dosage: UNK UKN, UNK
  12. PREGABALIN [Concomitant]
     Dosage: 75 mg, UNK
  13. METHYLCOBALAMIN [Concomitant]
     Dosage: 750 ug, UNK
  14. GABANEURON [Concomitant]
     Dosage: UNK UKN, UNK
  15. VELGUT [Concomitant]
     Dosage: UNK UKN, UNK
  16. PANTIUM [Concomitant]
     Dosage: UNK UKN, UNK
  17. DECA DURABOLIN [Concomitant]
     Dosage: UNK UKN, UNK
  18. CREMAFFIN PLUS [Concomitant]
     Dosage: UNK UKN, UNK
  19. PANSA [Concomitant]
     Dosage: UNK UKN, UNK
     Route: 042
  20. ENEMA [Concomitant]
     Dosage: UNK UKN, UNK
  21. PANTOP [Concomitant]
     Dosage: UNK UKN, UNK
  22. ALENDRONATE [Concomitant]
     Dosage: UNK UKN, UNK

REACTIONS (3)
  - Fall [Not Recovered/Not Resolved]
  - Femur fracture [Not Recovered/Not Resolved]
  - Injury [Not Recovered/Not Resolved]
